FAERS Safety Report 14600092 (Version 1)
Quarter: 2018Q1

REPORT INFORMATION
  Report Type: Spontaneous
  Country: JP (occurrence: JP)
  Receive Date: 20180305
  Receipt Date: 20180305
  Transmission Date: 20180509
  Serious: Yes (Other)
  Sender: FDA-Public Use
  Company Number: JP-IMPAX LABORATORIES, INC-2018-IPXL-00617

PATIENT
  Age: 18 Day
  Sex: Male

DRUGS (1)
  1. HYDROCORTISONE. [Suspect]
     Active Substance: HYDROCORTISONE
     Indication: HYPOPITUITARISM
     Dosage: UNK
     Route: 065

REACTIONS (3)
  - Neonatal cholestasis [Recovered/Resolved]
  - Cholelithiasis [Recovered/Resolved]
  - Motor developmental delay [Not Recovered/Not Resolved]
